FAERS Safety Report 21359311 (Version 1)
Quarter: 2022Q3

REPORT INFORMATION
  Report Type: Spontaneous
  Country: US (occurrence: US)
  Receive Date: 20220921
  Receipt Date: 20220921
  Transmission Date: 20221027
  Serious: Yes (Other)
  Sender: FDA-Public Use
  Company Number: US-BRISTOL-MYERS SQUIBB COMPANY-2022-109190

PATIENT
  Age: 21 Year
  Sex: Female
  Weight: 100.24 kg

DRUGS (1)
  1. ONUREG [Suspect]
     Active Substance: AZACITIDINE
     Indication: Product used for unknown indication
     Dosage: 14D OF 28D CYCLE
     Route: 048

REACTIONS (1)
  - Malignant neoplasm progression [Unknown]
